FAERS Safety Report 7442353-6 (Version None)
Quarter: 2011Q2

REPORT INFORMATION
  Report Type: 
  Country: None (occurrence: None)
  Receive Date: 20110425
  Receipt Date: 20110425
  Transmission Date: 20111010
  Serious: No
  Sender: FDA-Public Use
  Company Number: None

PATIENT
  Age: 8 Month
  Sex: Female
  Weight: 7.7111 kg

DRUGS (2)
  1. HYLAND TEETHING TABLETS 125 TABLETS HYLANDS [Suspect]
     Indication: IRRITABILITY
     Dosage: 2 TABLETS 3 TIMES A DAY
     Dates: start: 20110421, end: 20110424
  2. HYLAND TEETHING TABLETS 125 TABLETS HYLANDS [Suspect]
     Indication: TEETHING
     Dosage: 2 TABLETS 3 TIMES A DAY
     Dates: start: 20110421, end: 20110424

REACTIONS (5)
  - SOMNOLENCE [None]
  - DECREASED APPETITE [None]
  - PRODUCT QUALITY ISSUE [None]
  - CONSTIPATION [None]
  - NASOPHARYNGITIS [None]
